FAERS Safety Report 15579137 (Version 2)
Quarter: 2019Q1

REPORT INFORMATION
  Report Type: Spontaneous
  Country: IT (occurrence: IT)
  Receive Date: 20181102
  Receipt Date: 20190118
  Transmission Date: 20190417
  Serious: Yes (Hospitalization)
  Sender: FDA-Public Use
  Company Number: IND-IT-009507513-1811ITA000356

PATIENT
  Age: 82 Year
  Sex: Female

DRUGS (5)
  1. ADALAT CRONO [Concomitant]
     Active Substance: NIFEDIPINE
     Route: 048
  2. EUTIROX [Concomitant]
     Active Substance: LEVOTHYROXINE SODIUM
  3. ARTROSILENE [Suspect]
     Active Substance: KETOPROFEN
     Indication: ARTHRALGIA
     Dosage: 1 DOSAGE FORM
     Route: 048
     Dates: start: 20180101, end: 20180327
  4. STILNOX [Concomitant]
     Active Substance: ZOLPIDEM TARTRATE
  5. ARCOXIA [Suspect]
     Active Substance: ETORICOXIB
     Indication: ARTHRALGIA
     Route: 048
     Dates: start: 20180101, end: 20180327

REACTIONS (2)
  - Anaemia [Recovering/Resolving]
  - Gastritis erosive [Recovering/Resolving]

NARRATIVE: CASE EVENT DATE: 20180327
